FAERS Safety Report 15967197 (Version 3)
Quarter: 2019Q3

REPORT INFORMATION
  Report Type: Spontaneous
  Country: US (occurrence: US)
  Receive Date: 20190215
  Receipt Date: 20190822
  Transmission Date: 20191004
  Serious: Yes (Other)
  Sender: FDA-Public Use
  Company Number: US-SA-2019SA038340

PATIENT
  Age: 63 Year
  Sex: Female

DRUGS (1)
  1. AUBAGIO [Suspect]
     Active Substance: TERIFLUNOMIDE
     Indication: MULTIPLE SCLEROSIS
     Dosage: 14 MG, QD
     Route: 048
     Dates: start: 20170429

REACTIONS (7)
  - Diarrhoea [Not Recovered/Not Resolved]
  - Gait disturbance [Unknown]
  - Vitamin D decreased [Unknown]
  - Musculoskeletal disorder [Unknown]
  - Musculoskeletal disorder [Unknown]
  - Multiple sclerosis relapse [Unknown]
  - Dysgraphia [Not Recovered/Not Resolved]

NARRATIVE: CASE EVENT DATE: 20190201
